FAERS Safety Report 10022634 (Version 1)
Quarter: 2014Q1

REPORT INFORMATION
  Report Type: Spontaneous
  Country: TW (occurrence: TW)
  Receive Date: 20140319
  Receipt Date: 20140319
  Transmission Date: 20141002
  Serious: Yes (Hospitalization)
  Sender: FDA-Public Use
  Company Number: TW-ROXANE LABORATORIES, INC.-2014-RO-00421RO

PATIENT
  Age: 74 Year
  Sex: Male

DRUGS (2)
  1. QUETIAPINE FUMARATE [Suspect]
     Indication: BIPOLAR I DISORDER
     Dosage: 100 MG
     Route: 065
  2. QUETIAPINE FUMARATE [Suspect]
     Dosage: 25 MG
     Route: 065

REACTIONS (2)
  - Mania [Recovered/Resolved]
  - Tardive dyskinesia [Recovered/Resolved]
